FAERS Safety Report 9804280 (Version 1)
Quarter: 2014Q1

REPORT INFORMATION
  Report Type: Report from Study
  Country: CA (occurrence: CA)
  Receive Date: 20140108
  Receipt Date: 20140108
  Transmission Date: 20141002
  Serious: Yes (Other)
  Sender: FDA-Public Use
  Company Number: CA-JNJFOC-20140101386

PATIENT
  Age: 30 Year
  Sex: Male
  Weight: 101 kg

DRUGS (3)
  1. REMICADE [Suspect]
     Indication: CROHN^S DISEASE
     Route: 042
     Dates: start: 20110922
  2. FLAGYL [Concomitant]
     Route: 048
  3. CIPRO [Concomitant]
     Route: 048

REACTIONS (1)
  - Fistula [Unknown]
